FAERS Safety Report 6468466-3 (Version None)
Quarter: 2009Q4

REPORT INFORMATION
  Report Type: 
  Country: None (occurrence: None)
  Receive Date: 20091130
  Receipt Date: 20091105
  Transmission Date: 20100525
  Serious: Yes (Hospitalization)
  Sender: FDA-Public Use
  Company Number: DSA_42036_2009

PATIENT
  Age: 74 Year
  Sex: Female

DRUGS (2)
  1. MASDIL (MASDIL - DILTIAZEM HYDROCHLORIDE ) (NOT SPECIFIED) [Suspect]
     Indication: HYPERTENSION
     Dosage: (300 MG QD ORAL)
     Route: 048
     Dates: start: 20081201, end: 20090113
  2. ALDACTONE [Suspect]
     Indication: HYPERTENSION
     Dosage: (25 MG QD ORAL)
     Route: 048
     Dates: start: 20081201, end: 20090113

REACTIONS (5)
  - ATRIAL FIBRILLATION [None]
  - ATRIOVENTRICULAR BLOCK [None]
  - BRADYCARDIA [None]
  - HYPERKALAEMIA [None]
  - RENAL FAILURE ACUTE [None]
